FAERS Safety Report 22389030 (Version 2)
Quarter: 2023Q2

REPORT INFORMATION
  Report Type: Spontaneous
  Country: US (occurrence: US)
  Receive Date: 20230531
  Receipt Date: 20230614
  Transmission Date: 20230721
  Serious: Yes (Death)
  Sender: FDA-Public Use
  Company Number: US-PFIZER INC-202201256913

PATIENT
  Age: 88 Year
  Sex: Male
  Weight: 57.61 kg

DRUGS (1)
  1. VYNDAMAX [Suspect]
     Active Substance: TAFAMIDIS
     Indication: Amyloidosis
     Dosage: 61MG CAPSULES ONCE A DAY
     Dates: start: 202103

REACTIONS (7)
  - Death [Fatal]
  - Cardiac disorder [Fatal]
  - Amyloidosis [Fatal]
  - Blindness [Fatal]
  - Neuropathy peripheral [Fatal]
  - Bone pain [Fatal]
  - Off label use [Unknown]

NARRATIVE: CASE EVENT DATE: 20210301
